FAERS Safety Report 20818182 (Version 1)
Quarter: 2022Q2

REPORT INFORMATION
  Report Type: Spontaneous
  Country: KR (occurrence: KR)
  Receive Date: 20220512
  Receipt Date: 20220512
  Transmission Date: 20220720
  Serious: Yes (Other)
  Sender: FDA-Public Use
  Company Number: KR-NKFPHARMA-2022MPLIT00064

PATIENT
  Age: 72 Year
  Sex: Female

DRUGS (1)
  1. HEPARIN [Suspect]
     Active Substance: HEPARIN SODIUM
     Indication: Venous thrombosis
     Route: 042

REACTIONS (2)
  - Neuropathy peripheral [Recovered/Resolved]
  - Retroperitoneal haematoma [Recovered/Resolved]
